FAERS Safety Report 12470557 (Version 1)
Quarter: 2016Q2

REPORT INFORMATION
  Report Type: Spontaneous
  Country: US (occurrence: US)
  Receive Date: 20160616
  Receipt Date: 20160616
  Transmission Date: 20160815
  Serious: No
  Sender: FDA-Public Use
  Company Number: US-009507513-1606USA003123

PATIENT
  Sex: Female

DRUGS (2)
  1. NEXPLANON [Suspect]
     Active Substance: ETONOGESTREL
     Dosage: UNK
     Route: 059
  2. NEXPLANON [Suspect]
     Active Substance: ETONOGESTREL
     Dosage: UNK

REACTIONS (5)
  - Overdose [Unknown]
  - Device deployment issue [Recovered/Resolved]
  - Incorrect drug administration duration [Unknown]
  - Device difficult to use [Recovered/Resolved]
  - Complication of device removal [Recovered/Resolved]
